FAERS Safety Report 13757080 (Version 2)
Quarter: 2017Q4

REPORT INFORMATION
  Report Type: Report from Study
  Country: None (occurrence: US)
  Receive Date: 20170715
  Receipt Date: 20171002
  Transmission Date: 20180320
  Serious: Yes (Hospitalization, Disabling)
  Sender: FDA-Public Use
  Company Number: US-ABBVIE-17K-163-2038183-00

PATIENT
  Age: 79 Year
  Sex: Female
  Weight: 68.1 kg

DRUGS (9)
  1. METOPROLOL. [Concomitant]
     Active Substance: METOPROLOL
     Indication: PRODUCT USED FOR UNKNOWN INDICATION
  2. FENOFIBRATE. [Concomitant]
     Active Substance: FENOFIBRATE
     Indication: PRODUCT USED FOR UNKNOWN INDICATION
  3. TEMAZEPAM. [Concomitant]
     Active Substance: TEMAZEPAM
     Indication: PRODUCT USED FOR UNKNOWN INDICATION
  4. HUMIRA [Suspect]
     Active Substance: ADALIMUMAB
     Indication: RHEUMATOID ARTHRITIS
     Route: 058
     Dates: end: 20170325
  5. HYDROCODONE [Concomitant]
     Active Substance: HYDROCODONE
     Indication: PRODUCT USED FOR UNKNOWN INDICATION
  6. VANCOMYCIN [Suspect]
     Active Substance: VANCOMYCIN
     Indication: STAPHYLOCOCCAL INFECTION
     Route: 065
     Dates: start: 201709, end: 201709
  7. HUMIRA [Suspect]
     Active Substance: ADALIMUMAB
     Route: 058
     Dates: start: 201708, end: 201708
  8. PREDNISONE. [Concomitant]
     Active Substance: PREDNISONE
     Indication: RHEUMATOID ARTHRITIS
  9. LOSARTAN. [Concomitant]
     Active Substance: LOSARTAN
     Indication: PRODUCT USED FOR UNKNOWN INDICATION

REACTIONS (14)
  - Staphylococcal infection [Recovering/Resolving]
  - Device fastener issue [Not Recovered/Not Resolved]
  - Incisional drainage [Unknown]
  - Gait disturbance [Not Recovered/Not Resolved]
  - Pruritus allergic [Unknown]
  - Peroneal nerve palsy [Not Recovered/Not Resolved]
  - Impaired healing [Recovered/Resolved]
  - Procedural pain [Recovering/Resolving]
  - Suture related complication [Recovered/Resolved]
  - Mobility decreased [Not Recovered/Not Resolved]
  - Sciatic nerve injury [Recovering/Resolving]
  - Rheumatoid arthritis [Recovering/Resolving]
  - Hypoaesthesia [Not Recovered/Not Resolved]
  - Wound secretion [Recovered/Resolved]

NARRATIVE: CASE EVENT DATE: 2017
